FAERS Safety Report 25682296 (Version 2)
Quarter: 2025Q3

REPORT INFORMATION
  Report Type: Spontaneous
  Country: US (occurrence: US)
  Receive Date: 20250814
  Receipt Date: 20250902
  Transmission Date: 20251020
  Serious: Yes (Other)
  Sender: FRESENIUS KABI
  Company Number: US-FreseniusKabi-FK202511161

PATIENT
  Sex: Male

DRUGS (4)
  1. CHORIONIC GONADOTROPIN [Suspect]
     Active Substance: CHORIOGONADOTROPIN ALFA
     Indication: Blood testosterone decreased
     Dosage: SUBCUTANEOUS (IN ABDOMEN)?250 UNITS; THREE TIMES A WEEK?ON AN UNKNOWN DATE IN THE SUMMER OF 2023, TH
     Route: 058
     Dates: start: 2023, end: 202402
  2. CHORIONIC GONADOTROPIN [Suspect]
     Active Substance: CHORIOGONADOTROPIN ALFA
     Indication: Cortisol increased
  3. CHORIONIC GONADOTROPIN [Suspect]
     Active Substance: CHORIOGONADOTROPIN ALFA
     Indication: Insulin-like growth factor increased
  4. TESTOSTERONE [Concomitant]
     Active Substance: TESTOSTERONE
     Indication: Product used for unknown indication

REACTIONS (11)
  - Off label use [Unknown]
  - Nervous system disorder [Not Recovered/Not Resolved]
  - Insomnia [Not Recovered/Not Resolved]
  - Stress [Not Recovered/Not Resolved]
  - Paraesthesia [Not Recovered/Not Resolved]
  - Neuralgia [Not Recovered/Not Resolved]
  - Asthenia [Not Recovered/Not Resolved]
  - Weight decreased [Not Recovered/Not Resolved]
  - Fatigue [Not Recovered/Not Resolved]
  - Variant Creutzfeldt-Jakob disease [Not Recovered/Not Resolved]
  - Encephalopathy [Unknown]

NARRATIVE: CASE EVENT DATE: 20230101
